FAERS Safety Report 9759877 (Version 8)
Quarter: 2014Q1

REPORT INFORMATION
  Report Type: Report from Study
  Country: BR (occurrence: BR)
  Receive Date: 20131216
  Receipt Date: 20140331
  Transmission Date: 20141002
  Serious: Yes (Hospitalization, Other)
  Sender: FDA-Public Use
  Company Number: BR-PFIZER INC-2013350277

PATIENT
  Age: 52 Year
  Sex: Female
  Weight: 58.4 kg

DRUGS (4)
  1. TOFACITINIB CITRATE [Suspect]
     Indication: RHEUMATOID ARTHRITIS
     Dosage: 10 MG, 2X/DAY
     Route: 048
     Dates: start: 20121031, end: 20130925
  2. OMEPRAZOLE [Concomitant]
     Indication: DYSPEPSIA
     Dosage: UNK
     Dates: start: 20121121
  3. TIMOLOL [Concomitant]
     Indication: GLAUCOMA
     Dosage: UNK
     Dates: start: 1980
  4. SALBUTAMOL [Concomitant]
     Indication: BRONCHITIS
     Dosage: UNK
     Dates: start: 20130108

REACTIONS (1)
  - Dengue fever [Recovered/Resolved]
